FAERS Safety Report 4884317-2 (Version None)
Quarter: 2005Q4

REPORT INFORMATION
  Report Type: 
  Country: None (occurrence: None)
  Receive Date: 20051201
  Receipt Date: 20050829
  Transmission Date: 20060501
  Serious: No
  Sender: FDA-Public Use
  Company Number: 2005PV001664

PATIENT
  Age: 78 Year
  Sex: Female
  Weight: 108.8633 kg

DRUGS (10)
  1. BYETTA [Suspect]
     Indication: DIABETES MELLITUS NON-INSULIN-DEPENDENT
     Dosage: SEE IMAGE
     Route: 058
     Dates: start: 20050716, end: 20050814
  2. BYETTA [Suspect]
     Indication: DIABETES MELLITUS NON-INSULIN-DEPENDENT
     Dosage: SEE IMAGE
     Route: 058
     Dates: start: 20050815
  3. AMARYL [Concomitant]
  4. GLUCOPHAGE [Concomitant]
  5. DIOVAN [Concomitant]
  6. ASPIRIN [Concomitant]
  7. PAROXETINE HCL [Concomitant]
  8. ELAVIL [Concomitant]
  9. LEVAQUIN [Concomitant]
  10. LORATADINE [Concomitant]

REACTIONS (10)
  - ABDOMINAL DISTENSION [None]
  - BACK PAIN [None]
  - DRUG EFFECT DECREASED [None]
  - EAR INFECTION [None]
  - ERUCTATION [None]
  - NAUSEA [None]
  - PHARYNGOLARYNGEAL PAIN [None]
  - POLLAKIURIA [None]
  - URINARY TRACT INFECTION [None]
  - WEIGHT DECREASED [None]
